APPROVED DRUG PRODUCT: CELECOXIB
Active Ingredient: CELECOXIB
Strength: 100MG
Dosage Form/Route: CAPSULE;ORAL
Application: A212564 | Product #001
Applicant: YABAO PHARMACEUTICAL CO LTD BEIJING
Approved: Apr 10, 2023 | RLD: No | RS: No | Type: DISCN